FAERS Safety Report 13264283 (Version 1)
Quarter: 2017Q1

REPORT INFORMATION
  Report Type: Report from Study
  Country: US (occurrence: US)
  Receive Date: 20170223
  Receipt Date: 20170223
  Transmission Date: 20170428
  Serious: Yes (Death, Other)
  Sender: FDA-Public Use
  Company Number: US-REGENERON PHARMACEUTICALS, INC.-2017-12168

PATIENT

DRUGS (2)
  1. EYLEA [Suspect]
     Active Substance: AFLIBERCEPT
     Indication: DIABETIC RETINOPATHY
     Dosage: LEFT EYE (OS)
     Dates: start: 20160916, end: 20161207
  2. EYLEA [Suspect]
     Active Substance: AFLIBERCEPT
     Indication: DIABETIC RETINAL OEDEMA

REACTIONS (1)
  - Myocardial infarction [Fatal]
